FAERS Safety Report 19314056 (Version 2)
Quarter: 2021Q2

REPORT INFORMATION
  Report Type: Spontaneous
  Country: US (occurrence: US)
  Receive Date: 20210527
  Receipt Date: 20210527
  Transmission Date: 20210717
  Serious: No
  Sender: FDA-Public Use
  Company Number: US-JNJFOC-20210451143

PATIENT
  Age: 77 Year
  Sex: Female

DRUGS (1)
  1. TYLENOL [Suspect]
     Active Substance: ACETAMINOPHEN
     Indication: SURGERY
     Dosage: 500MG 2 EVERY 6 HOURS
     Route: 065
     Dates: start: 20210419

REACTIONS (2)
  - Therapeutic product effect incomplete [Unknown]
  - Nausea [Not Recovered/Not Resolved]

NARRATIVE: CASE EVENT DATE: 20210419
